FAERS Safety Report 10036370 (Version 2)
Quarter: 2014Q1

REPORT INFORMATION
  Report Type: Report from Study
  Country: NL (occurrence: NL)
  Receive Date: 20140325
  Receipt Date: 20140331
  Transmission Date: 20141002
  Serious: Yes (Hospitalization)
  Sender: FDA-Public Use
  Company Number: NL-TEVA-470215ISR

PATIENT
  Age: 68 Year
  Sex: Female

DRUGS (5)
  1. LIPOSOMAL DOXORUBICIN [Suspect]
  2. PACLITAXEL [Suspect]
     Indication: BREAST CANCER METASTATIC
     Dosage: 156 MILLIGRAM DAILY;
     Route: 042
     Dates: start: 20130225, end: 20130603
  3. BEVACIZUMAB [Suspect]
     Indication: BREAST CANCER METASTATIC
     Dosage: 950 MILLIGRAM DAILY;
     Route: 042
     Dates: start: 20130225, end: 20131230
  4. DENOSUMAB [Concomitant]
     Dates: start: 20130816
  5. CALCICHEW [Concomitant]
     Dates: start: 20130920

REACTIONS (1)
  - Pulmonary hypertension [Recovered/Resolved]
